FAERS Safety Report 10337065 (Version 1)
Quarter: 2014Q3

REPORT INFORMATION
  Report Type: Spontaneous
  Country: IL (occurrence: IL)
  Receive Date: 20140723
  Receipt Date: 20140723
  Transmission Date: 20150326
  Serious: Yes (Other)
  Sender: FDA-Public Use
  Company Number: IL-PFIZER INC-2014203664

PATIENT
  Age: 68 Year
  Sex: Male

DRUGS (6)
  1. CADEX [Concomitant]
     Indication: PROSTATIC DISORDER
  2. RYTHMEX [Concomitant]
     Active Substance: PROPAFENONE HYDROCHLORIDE
     Indication: ARRHYTHMIA
     Dosage: 600 UNK, 1X/DAY
  3. LYRICA [Suspect]
     Active Substance: PREGABALIN
     Dosage: 300 UNK, 2X/DAY MORNING AND EVENING
  4. TRADJENTA [Concomitant]
     Active Substance: LINAGLIPTIN
     Dosage: UNK, 4 TIMES A DAY
  5. CO-DIOVAN [Concomitant]
     Active Substance: HYDROCHLOROTHIAZIDE\VALSARTAN
  6. THYROXIN [Concomitant]
     Active Substance: LEVOTHYROXINE
     Indication: HYPOTHYROIDISM

REACTIONS (5)
  - Tachycardia [Unknown]
  - Grip strength decreased [Unknown]
  - Haemorrhage [Unknown]
  - Skin fissures [Unknown]
  - Oedema peripheral [Unknown]
